FAERS Safety Report 6358739-7 (Version None)
Quarter: 2009Q3

REPORT INFORMATION
  Report Type: 
  Country: None (occurrence: None)
  Receive Date: 20090914
  Receipt Date: 20090827
  Transmission Date: 20100115
  Serious: Yes (Death)
  Sender: FDA-Public Use
  Company Number: 2009AL002856

PATIENT
  Sex: Female

DRUGS (1)
  1. DIGOXIN [Suspect]
     Dosage: 0.125MG, DAILY, PO
     Route: 048
     Dates: start: 20060101, end: 20080101

REACTIONS (4)
  - ECONOMIC PROBLEM [None]
  - ILL-DEFINED DISORDER [None]
  - MULTIPLE INJURIES [None]
  - SURGERY [None]
